FAERS Safety Report 6044389-9 (Version None)
Quarter: 2009Q1

REPORT INFORMATION
  Report Type: 
  Country: None (occurrence: None)
  Receive Date: 20090120
  Receipt Date: 20081231
  Transmission Date: 20090719
  Serious: No
  Sender: FDA-Public Use
  Company Number: US-BAYER-200910052BCC

PATIENT
  Age: 15 Year
  Sex: Male

DRUGS (1)
  1. ALEVE (CAPLET) [Suspect]
     Indication: ORAL PAIN
     Dosage: TOTAL DAILY DOSE: 660 MG  UNIT DOSE: 220 MG
     Dates: start: 20081231

REACTIONS (1)
  - NO ADVERSE EVENT [None]
